FAERS Safety Report 4552926-6 (Version None)
Quarter: 2005Q1

REPORT INFORMATION
  Report Type: 
  Country: None (occurrence: None)
  Receive Date: 20050113
  Receipt Date: 20041230
  Transmission Date: 20050727
  Serious: Yes (Hospitalization, Other)
  Sender: FDA-Public Use
  Company Number: 2004S1003297

PATIENT
  Age: 78 Year
  Sex: Male
  Weight: 79.8331 kg

DRUGS (4)
  1. APOKYN [Suspect]
     Indication: PARKINSON'S DISEASE
     Dosage: 0.2 MG/ML, ONE DOSE, SUBCUTANEOUSLY
     Route: 058
     Dates: start: 20041026, end: 20041026
  2. CARBIDOPA AND LEVODOPA [Concomitant]
  3. TRIMETHOBENZAMIDE [Concomitant]
  4. PROPYLTHIOURACIL [Concomitant]

REACTIONS (6)
  - ASTHENIA [None]
  - BLOOD PRESSURE INCREASED [None]
  - DIZZINESS [None]
  - DYSSTASIA [None]
  - HEADACHE [None]
  - VISION BLURRED [None]
